FAERS Safety Report 5385717-7 (Version None)
Quarter: 2007Q3

REPORT INFORMATION
  Report Type: 
  Country: None (occurrence: None)
  Receive Date: 20070710
  Receipt Date: 20070619
  Transmission Date: 20080115
  Serious: Yes (Hospitalization, Other)
  Sender: FDA-Public Use
  Company Number: US-2007-006802

PATIENT
  Age: 31 Year
  Sex: Female
  Weight: 77 kg

DRUGS (2)
  1. YASMIN [Suspect]
     Indication: DYSMENORRHOEA
     Dates: start: 20061019, end: 20061201
  2. DARVOCET-N (DEXTROPROPOXYPHENE NAPSILATE) [Concomitant]

REACTIONS (7)
  - ABDOMINAL PAIN LOWER [None]
  - BLEEDING TIME PROLONGED [None]
  - DEEP VEIN THROMBOSIS [None]
  - FATIGUE [None]
  - GENITAL HAEMORRHAGE [None]
  - NAUSEA [None]
  - PULMONARY EMBOLISM [None]
